FAERS Safety Report 8096824-2 (Version None)
Quarter: 2012Q1

REPORT INFORMATION
  Report Type: 
  Country: None (occurrence: None)
  Receive Date: 20120126
  Receipt Date: 20120118
  Transmission Date: 20120608
  Serious: Yes (Other)
  Sender: FDA-Public Use
  Company Number: 2012SP003619

PATIENT
  Age: 44 Year
  Sex: Female

DRUGS (12)
  1. APRESOLINE [Concomitant]
  2. MEPERIDINE HCL [Concomitant]
  3. AMBIEN [Concomitant]
  4. TORADOL [Concomitant]
  5. LOVENOX [Concomitant]
  6. COLACE [Concomitant]
  7. NORCO [Concomitant]
  8. NORMODYNE [Concomitant]
  9. PROVENTIL [Concomitant]
  10. ONDANSETRON HCL [Concomitant]
  11. NUVARING [Suspect]
     Indication: PRODUCT USED FOR UNKNOWN INDICATION
     Dosage: 1 DF
  12. NARCAN [Concomitant]

REACTIONS (1)
  - LUNG NEOPLASM MALIGNANT [None]
